FAERS Safety Report 5333930-7 (Version None)
Quarter: 2007Q1

REPORT INFORMATION
  Report Type: 
  Country: None (occurrence: None)
  Receive Date: 20070308
  Receipt Date: 20070123
  Transmission Date: 20070707
  Serious: No
  Sender: FDA-Public Use
  Company Number: 2007-BP-01219BP

PATIENT
  Age: 68 Year
  Sex: Female

DRUGS (12)
  1. SPIRIVA [Suspect]
     Indication: ASTHMA
     Dosage: 18 MCG (18 MCG, 1 IN 1 D), IH
     Route: 055
     Dates: start: 20050101
  2. SPIRIVA [Suspect]
  3. OXYGEN (OXYGEN) [Concomitant]
  4. ZETIA [Concomitant]
  5. IMDUR [Concomitant]
  6. DIOVAN [Concomitant]
  7. NORVASC [Concomitant]
  8. LASIX [Concomitant]
  9. KLOR-CON [Concomitant]
  10. METFORMIN HCL [Concomitant]
  11. SINGULAIR [Concomitant]
  12. ADVAIR (SERRETIDE) [Concomitant]

REACTIONS (1)
  - WHEEZING [None]
